FAERS Safety Report 8714108 (Version 4)
Quarter: 2018Q4

REPORT INFORMATION
  Report Type: Spontaneous
  Country: FR (occurrence: FR)
  Receive Date: 20120808
  Receipt Date: 20181011
  Transmission Date: 20190205
  Serious: Yes (Death, Hospitalization)
  Sender: FDA-Public Use
  Company Number: FR-PFIZER INC-2012190889

PATIENT
  Age: 87 Year
  Sex: Female

DRUGS (10)
  1. COUMADINE [Concomitant]
     Active Substance: WARFARIN SODIUM
     Dosage: UNK
     Route: 048
  2. ADANCOR [Concomitant]
     Active Substance: NICORANDIL
     Dosage: UNK
     Route: 065
  3. DUROGESIC [Concomitant]
     Active Substance: FENTANYL
     Dosage: UNK
     Route: 065
  4. TRIATEC (RAMIPRIL) [Suspect]
     Active Substance: RAMIPRIL
     Dosage: 5 MG, DAILY
     Route: 048
  5. DAFALGAN [Concomitant]
     Active Substance: ACETAMINOPHEN
     Dosage: UNK
  6. SPIRONOLACTONE. [Concomitant]
     Active Substance: SPIRONOLACTONE
     Dosage: UNK
     Route: 065
  7. LEVOTHYROX [Concomitant]
     Active Substance: LEVOTHYROXINE
     Dosage: UNK
     Route: 048
  8. SEROPRAM (CITALOPRAM HYDROBROMIDE) [Concomitant]
     Active Substance: CITALOPRAM HYDROBROMIDE
     Dosage: UNK
     Route: 065
  9. ATENOLOL. [Suspect]
     Active Substance: ATENOLOL
     Dosage: 75 MG, 1X/DAY
     Route: 048
  10. LASILIX [Concomitant]
     Active Substance: FUROSEMIDE
     Dosage: UNK
     Route: 065

REACTIONS (5)
  - Bradycardia [Fatal]
  - Acute kidney injury [Fatal]
  - Overdose [Fatal]
  - Dehydration [Fatal]
  - Malnutrition [Fatal]

NARRATIVE: CASE EVENT DATE: 201207
